FAERS Safety Report 5607536-6 (Version None)
Quarter: 2008Q1

REPORT INFORMATION
  Report Type: 
  Country: None (occurrence: None)
  Receive Date: 20080130
  Receipt Date: 20080124
  Transmission Date: 20080703
  Serious: Yes (Hospitalization)
  Sender: FDA-Public Use
  Company Number: PHBS2007JP16555

PATIENT

DRUGS (2)
  1. NEORAL [Suspect]
     Indication: APLASTIC ANAEMIA
     Dosage: UNK, UNK
     Route: 048
  2. PREDNISOLONE [Concomitant]
     Indication: APLASTIC ANAEMIA
     Route: 048

REACTIONS (3)
  - BLOOD CREATININE INCREASED [None]
  - CHOLECYSTITIS [None]
  - RENAL DISORDER [None]
